FAERS Safety Report 10389228 (Version 1)
Quarter: 2014Q3

REPORT INFORMATION
  Report Type: Report from Study
  Country: BR (occurrence: BR)
  Receive Date: 20140818
  Receipt Date: 20140818
  Transmission Date: 20150326
  Serious: Yes (Other)
  Sender: FDA-Public Use
  Company Number: PHHY2014BR099063

PATIENT
  Age: 75 Year
  Sex: Male

DRUGS (3)
  1. AMINOPHYLLINE [Suspect]
     Active Substance: AMINOPHYLLINE
     Dosage: UNK UKN, UNK
  2. FENOTEROL [Concomitant]
     Active Substance: FENOTEROL
     Dosage: UNK UKN, UNK
  3. ATROVENT [Concomitant]
     Active Substance: IPRATROPIUM BROMIDE
     Dosage: UNK UKN, UNK

REACTIONS (9)
  - Weight increased [Unknown]
  - Systolic dysfunction [Unknown]
  - Pulmonary arterial hypertension [Unknown]
  - Emphysema [Unknown]
  - Breath sounds abnormal [Unknown]
  - Ventricular hypokinesia [Unknown]
  - Heart sounds abnormal [Unknown]
  - Rhonchi [Unknown]
  - Interstitial lung disease [Unknown]
